FAERS Safety Report 6014546-6 (Version None)
Quarter: 2008Q4

REPORT INFORMATION
  Report Type: 
  Country: None (occurrence: None)
  Receive Date: 20081219
  Receipt Date: 20081030
  Transmission Date: 20090506
  Serious: No
  Sender: FDA-Public Use
  Company Number: A0741996A

PATIENT
  Age: 78 Year
  Sex: Male
  Weight: 88.6 kg

DRUGS (13)
  1. AVODART [Suspect]
     Indication: BENIGN PROSTATIC HYPERPLASIA
     Dosage: 1CAP PER DAY
     Route: 048
     Dates: start: 20080714, end: 20080728
  2. NOVOLIN N [Concomitant]
  3. ANTIHYPERTENSIVE [Concomitant]
     Indication: BLOOD PRESSURE
  4. CHOLESTEROL REDUCING AGENT [Concomitant]
     Indication: BLOOD CHOLESTEROL INCREASED
  5. VITAMIN E [Concomitant]
     Dosage: 400IU PER DAY
     Route: 048
  6. ASCORBIC ACID [Concomitant]
     Dosage: 500IU PER DAY
     Route: 048
  7. FISH OIL CAPSULES [Concomitant]
     Dosage: 500MG PER DAY
     Route: 048
  8. SAW PALMETTO [Concomitant]
  9. ZOCOR [Concomitant]
     Dosage: 40MG PER DAY
     Route: 048
  10. FOSINOPRIL SODIUM [Concomitant]
     Dosage: 40MG PER DAY
     Route: 048
  11. HYDROCHLOROTHIAZIDE [Concomitant]
     Dosage: 25MG PER DAY
     Route: 048
  12. METFORMIN HCL [Concomitant]
     Dosage: 500MG TWICE PER DAY
     Route: 048
  13. NOVOLIN N [Concomitant]

REACTIONS (6)
  - AGGRESSION [None]
  - BLOOD GLUCOSE INCREASED [None]
  - FATIGUE [None]
  - IRRITABILITY [None]
  - MALAISE [None]
  - MUSCULAR WEAKNESS [None]
